FAERS Safety Report 5838274-2 (Version None)
Quarter: 2008Q3

REPORT INFORMATION
  Report Type: 
  Country: None (occurrence: None)
  Receive Date: 20080808
  Receipt Date: 20080805
  Transmission Date: 20090109
  Serious: Yes (Death, Hospitalization)
  Sender: FDA-Public Use
  Company Number: DE-AVENTIS-200812120DE

PATIENT
  Age: 58 Year
  Sex: Female

DRUGS (1)
  1. ARAVA [Suspect]
     Indication: RHEUMATOID ARTHRITIS
     Dosage: DOSE: NOT REPORTED
     Route: 048
     Dates: start: 20030401, end: 20040501

REACTIONS (4)
  - ABDOMINAL PAIN [None]
  - BILE DUCT STENOSIS [None]
  - METASTASES TO LIVER [None]
  - PANCREATIC CARCINOMA [None]
